FAERS Safety Report 7037780-5 (Version None)
Quarter: 2010Q4

REPORT INFORMATION
  Report Type: 
  Country: None (occurrence: None)
  Receive Date: 20101011
  Receipt Date: 20100930
  Transmission Date: 20110411
  Serious: Yes (Hospitalization, Other)
  Sender: FDA-Public Use
  Company Number: AT-JNJFOC-20100905368

PATIENT
  Sex: Female
  Weight: 60 kg

DRUGS (2)
  1. REMICADE [Suspect]
     Indication: CROHN'S DISEASE
     Dosage: JULY/AUG/SEP 2006
     Route: 042
  2. REMICADE [Suspect]
     Route: 042

REACTIONS (3)
  - FLUSHING [None]
  - POLYARTHRITIS [None]
  - PYREXIA [None]
